FAERS Safety Report 10006449 (Version 1)
Quarter: 2014Q1

REPORT INFORMATION
  Report Type: Spontaneous
  Country: US (occurrence: None)
  Receive Date: 20140311
  Receipt Date: 20140311
  Transmission Date: 20141002
  Serious: Yes (Hospitalization)
  Sender: FDA-Public Use
  Company Number: 14AE009

PATIENT
  Age: 12 Year
  Sex: Male
  Weight: 72.58 kg

DRUGS (2)
  1. EQUATE ASPIRIN 250MG, ACETAMINOPHEN 250MG, CAFFEINE  65MG FILM COATED WHITE TABLETS [Suspect]
     Indication: PAIN
     Dosage: 2 BY MOUTH/ONCE
     Route: 048
     Dates: start: 20140221, end: 20140222
  2. INHALER FOR ASTHMA [Concomitant]

REACTIONS (4)
  - Dyspnoea [None]
  - Eye swelling [None]
  - Dizziness [None]
  - Palpitations [None]
